FAERS Safety Report 5075598-3 (Version None)
Quarter: 2006Q3

REPORT INFORMATION
  Report Type: 
  Country: None (occurrence: None)
  Receive Date: 20060809
  Receipt Date: 20060731
  Transmission Date: 20061208
  Serious: Yes (Other)
  Sender: FDA-Public Use
  Company Number: GB-AVENTIS-200614246EU

PATIENT

DRUGS (1)
  1. CLEXANE [Suspect]

REACTIONS (2)
  - HEAD INJURY [None]
  - SUBDURAL HAEMATOMA [None]
